FAERS Safety Report 8796221 (Version 1)
Quarter: 2012Q4

REPORT INFORMATION
  Report Type: 
  Country: DE (occurrence: DE)
  Receive Date: 20120919
  Receipt Date: 20120919
  Transmission Date: 20130627
  Serious: Yes (Congenital Anomaly, Other)
  Sender: FDA-Public Use
  Company Number: DE-ARROW-2012-15791

PATIENT
  Sex: Female
  Weight: 2.95 kg

DRUGS (4)
  1. LAMOTRIGINE (UNKNOWN) [Suspect]
     Indication: EPILEPSY
     Dosage: 300mg/d gw, 10-11: 225mg/d; gw, 10-12: 250mg/d; gw, 12-13: 275 mg/; gw, 13-15: 300mg/d
     Route: 064
     Dates: start: 20110218, end: 20111202
  2. VIMPAT [Suspect]
     Indication: EPILEPSY
     Dosage: 250 mg/d gw; 10-11 250mg/d; gw, 11-12: 200mg/d; gw, 12-13: 150mg/d; gw, 13-14: 100mg/d; gw, 14-15:50
     Route: 064
     Dates: start: 20110218, end: 20111202
  3. ZEBINIX [Concomitant]
     Indication: EPILEPSY
     Dosage: 200 mg, daily
     Route: 064
     Dates: start: 20110218, end: 20110323
  4. FOLIC ACID [Concomitant]
     Indication: PROPHYLAXIS OF NEURAL TUBE DEFECT
     Dosage: 0.8 mg, daily
     Route: 064
     Dates: start: 20110418, end: 20111202

REACTIONS (3)
  - Atrial septal defect [Recovered/Resolved]
  - Directional Doppler flow tests abnormal [Recovered/Resolved]
  - Small for dates baby [Unknown]
